FAERS Safety Report 17241733 (Version 4)
Quarter: 2025Q3

REPORT INFORMATION
  Report Type: Spontaneous
  Country: EU (occurrence: EU)
  Receive Date: 20200107
  Receipt Date: 20250721
  Transmission Date: 20251021
  Serious: Yes (Other)
  Sender: MYLAN
  Company Number: EU-MYLANLABS-2020M1001031

PATIENT
  Age: 81 Year
  Sex: Female

DRUGS (118)
  1. PREGABALIN [Suspect]
     Active Substance: PREGABALIN
     Indication: Post herpetic neuralgia
     Route: 048
  2. PREGABALIN [Suspect]
     Active Substance: PREGABALIN
     Indication: Neuralgia
  3. PREGABALIN [Suspect]
     Active Substance: PREGABALIN
  4. PREGABALIN [Suspect]
     Active Substance: PREGABALIN
     Route: 048
  5. PREGABALIN [Suspect]
     Active Substance: PREGABALIN
     Route: 048
  6. PREGABALIN [Suspect]
     Active Substance: PREGABALIN
  7. PREGABALIN [Suspect]
     Active Substance: PREGABALIN
  8. PREGABALIN [Suspect]
     Active Substance: PREGABALIN
     Route: 048
  9. ACETAMINOPHEN\TRAMADOL [Suspect]
     Active Substance: ACETAMINOPHEN\TRAMADOL
     Indication: Back pain
     Dosage: 1 DOSAGE FORM, BID (75/650 MG)
  10. ACETAMINOPHEN\TRAMADOL [Suspect]
     Active Substance: ACETAMINOPHEN\TRAMADOL
     Indication: Neuralgia
     Dosage: 1 DOSAGE FORM, BID (75/650 MG)
     Route: 048
  11. ACETAMINOPHEN\TRAMADOL [Suspect]
     Active Substance: ACETAMINOPHEN\TRAMADOL
     Dosage: 1 DOSAGE FORM, BID (75/650 MG)
     Route: 048
  12. ACETAMINOPHEN\TRAMADOL [Suspect]
     Active Substance: ACETAMINOPHEN\TRAMADOL
     Dosage: 1 DOSAGE FORM, BID (75/650 MG)
  13. DULOXETINE [Suspect]
     Active Substance: DULOXETINE
     Indication: Neuralgia
  14. DULOXETINE [Suspect]
     Active Substance: DULOXETINE
     Route: 065
  15. DULOXETINE [Suspect]
     Active Substance: DULOXETINE
     Route: 065
  16. DULOXETINE [Suspect]
     Active Substance: DULOXETINE
  17. BUPRENORPHINE [Suspect]
     Active Substance: BUPRENORPHINE
     Indication: Neuralgia
  18. BUPRENORPHINE [Suspect]
     Active Substance: BUPRENORPHINE
     Route: 065
  19. BUPRENORPHINE [Suspect]
     Active Substance: BUPRENORPHINE
     Route: 065
  20. BUPRENORPHINE [Suspect]
     Active Substance: BUPRENORPHINE
  21. GABAPENTIN [Suspect]
     Active Substance: GABAPENTIN
     Indication: Neuralgia
  22. GABAPENTIN [Suspect]
     Active Substance: GABAPENTIN
     Route: 065
  23. GABAPENTIN [Suspect]
     Active Substance: GABAPENTIN
     Route: 065
  24. GABAPENTIN [Suspect]
     Active Substance: GABAPENTIN
  25. RISPERIDONE [Concomitant]
     Active Substance: RISPERIDONE
  26. RISPERIDONE [Concomitant]
     Active Substance: RISPERIDONE
     Route: 048
  27. RISPERIDONE [Concomitant]
     Active Substance: RISPERIDONE
     Route: 048
  28. RISPERIDONE [Concomitant]
     Active Substance: RISPERIDONE
  29. ROSUVASTATIN CALCIUM [Concomitant]
     Active Substance: ROSUVASTATIN CALCIUM
     Indication: Dyspnoea
  30. ROSUVASTATIN CALCIUM [Concomitant]
     Active Substance: ROSUVASTATIN CALCIUM
     Route: 048
  31. ROSUVASTATIN CALCIUM [Concomitant]
     Active Substance: ROSUVASTATIN CALCIUM
     Route: 048
  32. ROSUVASTATIN CALCIUM [Concomitant]
     Active Substance: ROSUVASTATIN CALCIUM
  33. LANSOPRAZOLE [Concomitant]
     Active Substance: LANSOPRAZOLE
  34. LANSOPRAZOLE [Concomitant]
     Active Substance: LANSOPRAZOLE
     Route: 048
  35. LANSOPRAZOLE [Concomitant]
     Active Substance: LANSOPRAZOLE
     Route: 048
  36. LANSOPRAZOLE [Concomitant]
     Active Substance: LANSOPRAZOLE
  37. PERINDOPRIL ARGININE [Concomitant]
     Active Substance: PERINDOPRIL ARGININE
  38. PERINDOPRIL ARGININE [Concomitant]
     Active Substance: PERINDOPRIL ARGININE
     Route: 048
  39. PERINDOPRIL ARGININE [Concomitant]
     Active Substance: PERINDOPRIL ARGININE
     Route: 048
  40. PERINDOPRIL ARGININE [Concomitant]
     Active Substance: PERINDOPRIL ARGININE
  41. LEVOCETIRIZINE [Concomitant]
     Active Substance: LEVOCETIRIZINE
  42. LEVOCETIRIZINE [Concomitant]
     Active Substance: LEVOCETIRIZINE
     Route: 048
  43. LEVOCETIRIZINE [Concomitant]
     Active Substance: LEVOCETIRIZINE
     Route: 048
  44. LEVOCETIRIZINE [Concomitant]
     Active Substance: LEVOCETIRIZINE
  45. OXAZEPAM [Concomitant]
     Active Substance: OXAZEPAM
     Indication: Dyspnoea
  46. OXAZEPAM [Concomitant]
     Active Substance: OXAZEPAM
     Route: 048
  47. OXAZEPAM [Concomitant]
     Active Substance: OXAZEPAM
     Route: 048
  48. OXAZEPAM [Concomitant]
     Active Substance: OXAZEPAM
  49. PROPAFENONE [Concomitant]
     Active Substance: PROPAFENONE
     Route: 048
  50. PROPAFENONE [Concomitant]
     Active Substance: PROPAFENONE
  51. Tamalis [Concomitant]
     Indication: Product used for unknown indication
  52. Tamalis [Concomitant]
     Route: 048
  53. Tamalis [Concomitant]
     Route: 048
  54. Tamalis [Concomitant]
  55. PERINDOPRIL [Concomitant]
     Active Substance: PERINDOPRIL
     Indication: Dyspnoea
  56. PERINDOPRIL [Concomitant]
     Active Substance: PERINDOPRIL
     Route: 048
  57. PERINDOPRIL [Concomitant]
     Active Substance: PERINDOPRIL
     Route: 048
  58. PERINDOPRIL [Concomitant]
     Active Substance: PERINDOPRIL
  59. CALTRATE [Concomitant]
     Active Substance: CALCIUM CARBONATE
     Indication: Product used for unknown indication
  60. CALTRATE [Concomitant]
     Active Substance: CALCIUM CARBONATE
     Route: 065
  61. CALTRATE [Concomitant]
     Active Substance: CALCIUM CARBONATE
     Route: 065
  62. CALTRATE [Concomitant]
     Active Substance: CALCIUM CARBONATE
  63. PROPAFENONE [Concomitant]
     Active Substance: PROPAFENONE
     Indication: Dyspnoea
  64. PROPAFENONE [Concomitant]
     Active Substance: PROPAFENONE
     Route: 048
  65. PROPAFENONE [Concomitant]
     Active Substance: PROPAFENONE
     Route: 048
  66. PROPAFENONE [Concomitant]
     Active Substance: PROPAFENONE
  67. LANSOPRAZOLE [Concomitant]
     Active Substance: LANSOPRAZOLE
     Indication: Dyspnoea
  68. LANSOPRAZOLE [Concomitant]
     Active Substance: LANSOPRAZOLE
     Route: 048
  69. LANSOPRAZOLE [Concomitant]
     Active Substance: LANSOPRAZOLE
     Route: 048
  70. LANSOPRAZOLE [Concomitant]
     Active Substance: LANSOPRAZOLE
  71. XYZAL [Concomitant]
     Active Substance: LEVOCETIRIZINE DIHYDROCHLORIDE
     Indication: Dyspnoea
  72. XYZAL [Concomitant]
     Active Substance: LEVOCETIRIZINE DIHYDROCHLORIDE
     Route: 048
  73. XYZAL [Concomitant]
     Active Substance: LEVOCETIRIZINE DIHYDROCHLORIDE
     Route: 048
  74. XYZAL [Concomitant]
     Active Substance: LEVOCETIRIZINE DIHYDROCHLORIDE
  75. DIOSMIN\HESPERIDIN [Concomitant]
     Active Substance: DIOSMIN\HESPERIDIN
     Indication: Dyspnoea
  76. DIOSMIN\HESPERIDIN [Concomitant]
     Active Substance: DIOSMIN\HESPERIDIN
     Route: 065
  77. DIOSMIN\HESPERIDIN [Concomitant]
     Active Substance: DIOSMIN\HESPERIDIN
     Route: 065
  78. DIOSMIN\HESPERIDIN [Concomitant]
     Active Substance: DIOSMIN\HESPERIDIN
  79. VENTOLIN [Concomitant]
     Active Substance: ALBUTEROL SULFATE
     Indication: Wheezing
  80. VENTOLIN [Concomitant]
     Active Substance: ALBUTEROL SULFATE
     Indication: Dyspnoea
     Route: 065
  81. VENTOLIN [Concomitant]
     Active Substance: ALBUTEROL SULFATE
     Route: 065
  82. VENTOLIN [Concomitant]
     Active Substance: ALBUTEROL SULFATE
  83. Mecobalamin;Pregabalin [Concomitant]
     Indication: Product used for unknown indication
  84. Mecobalamin;Pregabalin [Concomitant]
     Route: 065
  85. Mecobalamin;Pregabalin [Concomitant]
     Route: 065
  86. Mecobalamin;Pregabalin [Concomitant]
  87. Rismyl [Concomitant]
     Indication: Dyspnoea
  88. Rismyl [Concomitant]
     Route: 048
  89. Rismyl [Concomitant]
     Route: 048
  90. Rismyl [Concomitant]
  91. ZOLPIDEM TARTRATE [Concomitant]
     Active Substance: ZOLPIDEM TARTRATE
     Indication: Dyspnoea
  92. ZOLPIDEM TARTRATE [Concomitant]
     Active Substance: ZOLPIDEM TARTRATE
     Route: 065
  93. ZOLPIDEM TARTRATE [Concomitant]
     Active Substance: ZOLPIDEM TARTRATE
     Route: 065
  94. ZOLPIDEM TARTRATE [Concomitant]
     Active Substance: ZOLPIDEM TARTRATE
  95. METHYLPREDNISOLONE [Concomitant]
     Active Substance: METHYLPREDNISOLONE
     Indication: Dyspnoea
  96. METHYLPREDNISOLONE [Concomitant]
     Active Substance: METHYLPREDNISOLONE
     Route: 065
  97. METHYLPREDNISOLONE [Concomitant]
     Active Substance: METHYLPREDNISOLONE
     Route: 065
  98. METHYLPREDNISOLONE [Concomitant]
     Active Substance: METHYLPREDNISOLONE
  99. TAPENTADOL [Concomitant]
     Active Substance: TAPENTADOL
     Indication: Neuralgia
  100. TAPENTADOL [Concomitant]
     Active Substance: TAPENTADOL
     Route: 065
  101. TAPENTADOL [Concomitant]
     Active Substance: TAPENTADOL
     Route: 065
  102. TAPENTADOL [Concomitant]
     Active Substance: TAPENTADOL
  103. QUTENZA [Concomitant]
     Active Substance: CAPSAICIN
     Indication: Pain
     Dosage: 4 DOSAGE FORM, ONCE A DAY (QID (TOTAL OF 4X))
  104. QUTENZA [Concomitant]
     Active Substance: CAPSAICIN
     Dosage: 4 DOSAGE FORM, ONCE A DAY (QID (TOTAL OF 4X))
  105. QUTENZA [Concomitant]
     Active Substance: CAPSAICIN
     Dosage: 4 DOSAGE FORM, ONCE A DAY (QID (TOTAL OF 4X))
     Route: 065
  106. QUTENZA [Concomitant]
     Active Substance: CAPSAICIN
     Dosage: 4 DOSAGE FORM, ONCE A DAY (QID (TOTAL OF 4X))
     Route: 065
  107. QUTENZA [Concomitant]
     Active Substance: CAPSAICIN
  108. QUTENZA [Concomitant]
     Active Substance: CAPSAICIN
  109. QUTENZA [Concomitant]
     Active Substance: CAPSAICIN
     Route: 065
  110. QUTENZA [Concomitant]
     Active Substance: CAPSAICIN
     Route: 065
  111. LIDOCAINE [Concomitant]
     Active Substance: LIDOCAINE
     Indication: Neuralgia
     Dosage: 2 DOSAGE FORM, BID
  112. LIDOCAINE [Concomitant]
     Active Substance: LIDOCAINE
     Dosage: 2 DOSAGE FORM, BID
  113. LIDOCAINE [Concomitant]
     Active Substance: LIDOCAINE
     Dosage: 2 DOSAGE FORM, BID
     Route: 065
  114. LIDOCAINE [Concomitant]
     Active Substance: LIDOCAINE
     Dosage: 2 DOSAGE FORM, BID
     Route: 065
  115. LIDOCAINE [Concomitant]
     Active Substance: LIDOCAINE
     Dosage: 1 DOSAGE FORM, QD
  116. LIDOCAINE [Concomitant]
     Active Substance: LIDOCAINE
     Dosage: 1 DOSAGE FORM, QD
  117. LIDOCAINE [Concomitant]
     Active Substance: LIDOCAINE
     Dosage: 1 DOSAGE FORM, QD
     Route: 065
  118. LIDOCAINE [Concomitant]
     Active Substance: LIDOCAINE
     Dosage: 1 DOSAGE FORM, QD
     Route: 065

REACTIONS (14)
  - Seizure [Recovered/Resolved]
  - Hyperhidrosis [Recovered/Resolved]
  - Tachycardia [Recovered/Resolved]
  - Memory impairment [Recovered/Resolved]
  - Tremor [Recovered/Resolved]
  - Constipation [Recovered/Resolved]
  - Arthralgia [Recovered/Resolved]
  - Alopecia [Not Recovered/Not Resolved]
  - Muscle spasms [Recovered/Resolved]
  - Adverse reaction [Unknown]
  - Chills [Recovered/Resolved]
  - Drug intolerance [Unknown]
  - Drug ineffective [Unknown]
  - Product use in unapproved indication [Unknown]
